FAERS Safety Report 13609413 (Version 5)
Quarter: 2018Q2

REPORT INFORMATION
  Report Type: Spontaneous
  Country: AU (occurrence: AU)
  Receive Date: 20170602
  Receipt Date: 20180417
  Transmission Date: 20180711
  Serious: Yes (Other)
  Sender: FDA-Public Use
  Company Number: AU-009507513-1705AUS012151

PATIENT
  Sex: Female

DRUGS (3)
  1. MIRTAZAPINE. [Suspect]
     Active Substance: MIRTAZAPINE
     Indication: MAJOR DEPRESSION
     Dosage: 45 MG, UKNOWN FREQUENCY
     Route: 048
  2. LITHIUM. [Suspect]
     Active Substance: LITHIUM
     Indication: MAJOR DEPRESSION
     Dosage: 250 MG, UNKNOWN FREQUENCY
  3. VENLAFAXINE HYDROCHLORIDE. [Suspect]
     Active Substance: VENLAFAXINE HYDROCHLORIDE
     Indication: MAJOR DEPRESSION
     Dosage: DOSE 262.5 MG, UNKNOWN FREQUENCY

REACTIONS (5)
  - Affective disorder [Recovered/Resolved]
  - Dysphoria [Recovered/Resolved]
  - Impulsive behaviour [Recovered/Resolved]
  - Drug withdrawal syndrome [Recovered/Resolved]
  - Tachyphrenia [Recovered/Resolved]
